FAERS Safety Report 4752295-2 (Version None)
Quarter: 2005Q3

REPORT INFORMATION
  Report Type: 
  Country: None (occurrence: None)
  Receive Date: 20050825
  Receipt Date: 20050615
  Transmission Date: 20060218
  Serious: Yes (Disabling, Other)
  Sender: FDA-Public Use
  Company Number: US-GLAXOSMITHKLINE-A0563000A

PATIENT
  Age: 71 Year
  Sex: Female

DRUGS (10)
  1. WELLBUTRIN [Suspect]
     Indication: MAJOR DEPRESSION
     Dosage: 150MG PER DAY
     Route: 048
     Dates: start: 20050101, end: 20050101
  2. PREDNISONE TAB [Concomitant]
  3. ACTOS [Concomitant]
  4. AMARYL [Concomitant]
  5. LASIX [Concomitant]
  6. ASPIRIN [Concomitant]
  7. PREVACID [Concomitant]
  8. LOVENOX [Concomitant]
  9. METHADONE HCL [Concomitant]
  10. NORCO [Concomitant]

REACTIONS (6)
  - DYSKINESIA [None]
  - DYSTONIA [None]
  - FEELING ABNORMAL [None]
  - HALLUCINATION [None]
  - MUSCLE TWITCHING [None]
  - SPEECH DISORDER [None]
